FAERS Safety Report 19405339 (Version 3)
Quarter: 2021Q4

REPORT INFORMATION
  Report Type: Report from Study
  Country: IN (occurrence: IN)
  Receive Date: 20210611
  Receipt Date: 20211116
  Transmission Date: 20220303
  Serious: Yes (Hospitalization, Other)
  Sender: FDA-Public Use
  Company Number: IN-ASTELLAS-2021US021154

PATIENT
  Age: 73 Year
  Sex: Male

DRUGS (7)
  1. ISAVUCONAZOLE [Suspect]
     Active Substance: ISAVUCONAZOLE
     Indication: Product used for unknown indication
     Dosage: 100 MG, TWICE DAILY (100 MG, 2 IN 1 D)
     Route: 048
     Dates: start: 20210513
  2. ISAVUCONAZOLE [Suspect]
     Active Substance: ISAVUCONAZOLE
     Route: 042
  3. ISAVUCONAZOLE [Suspect]
     Active Substance: ISAVUCONAZOLE
     Dosage: 200 MG, ONCE DAILY (200 MG,1 IN 1 D)
     Route: 042
  4. ISAVUCONAZOLE [Suspect]
     Active Substance: ISAVUCONAZOLE
     Dosage: 200 MG, ONCE DAILY (200 MG,1 IN 1 D)
     Route: 048
  5. ISAVUCONAZOLE [Suspect]
     Active Substance: ISAVUCONAZOLE
     Dosage: 100 MG, TWICE DAILY (100 MG,2 IN 1 D)
     Route: 048
     Dates: start: 20210603
  6. PICASA [Concomitant]
     Indication: Product used for unknown indication
     Dosage: 200 MG, ONCE DAILY (200 MG, 2 IN 1 DAY)
     Route: 065
  7. PICASA [Concomitant]
     Dosage: 200 MG, ONCE DAILY (200 MG,1 IN DAY)
     Route: 065

REACTIONS (4)
  - Periorbital swelling [Unknown]
  - Mucormycosis [Unknown]
  - Off label use [Unknown]
  - Inappropriate schedule of product administration [Unknown]

NARRATIVE: CASE EVENT DATE: 20210501
